FAERS Safety Report 8501484-X (Version None)
Quarter: 2012Q3

REPORT INFORMATION
  Report Type: 
  Country: None (occurrence: None)
  Receive Date: 20120710
  Receipt Date: 20120702
  Transmission Date: 20120928
  Serious: Yes (Hospitalization)
  Sender: FDA-Public Use
  Company Number: US-JNJFOC-20120207973

PATIENT
  Sex: Female
  Weight: 41.2 kg

DRUGS (3)
  1. PRILOSEC [Concomitant]
  2. PREDNISONE [Concomitant]
  3. REMICADE [Suspect]
     Indication: CROHN'S DISEASE
     Route: 042
     Dates: start: 20110628

REACTIONS (1)
  - CROHN'S DISEASE [None]
